FAERS Safety Report 18617713 (Version 6)
Quarter: 2021Q2

REPORT INFORMATION
  Report Type: Report from Study
  Country: US (occurrence: US)
  Receive Date: 20201215
  Receipt Date: 20210419
  Transmission Date: 20210717
  Serious: No
  Sender: FDA-Public Use
  Company Number: US-TAKEDA-2020TUS056488

PATIENT
  Age: 62 Year
  Sex: Female
  Weight: 49 kg

DRUGS (31)
  1. PLAVIX [Concomitant]
     Active Substance: CLOPIDOGREL BISULFATE
     Dosage: UNK
  2. VITAMIN A [RETINOL] [Concomitant]
     Active Substance: RETINOL
  3. VITAMIN B12 [Concomitant]
     Active Substance: CYANOCOBALAMIN
  4. FLUBLOK QUADRIVALENT NOS [Concomitant]
     Active Substance: INFLUENZA VIRUS VACCINE
  5. IVERMECTIN. [Concomitant]
     Active Substance: IVERMECTIN
     Route: 065
  6. BROVANA [Concomitant]
     Active Substance: ARFORMOTEROL TARTRATE
     Dosage: UNK
  7. ZINC. [Concomitant]
     Active Substance: ZINC
  8. BIOTIN [Concomitant]
     Active Substance: BIOTIN
  9. EPINEPHRINE. [Concomitant]
     Active Substance: EPINEPHRINE
  10. ZOFRAN [Concomitant]
     Active Substance: ONDANSETRON HYDROCHLORIDE
  11. VITAMIN C [Concomitant]
     Active Substance: ASCORBIC ACID
  12. CUVITRU [Suspect]
     Active Substance: HUMAN IMMUNOGLOBULIN G
     Indication: INFECTION
     Dosage: 6 GRAM, 1/WEEK
     Route: 058
     Dates: start: 20201203
  13. ACETAMINOPHEN. [Concomitant]
     Active Substance: ACETAMINOPHEN
     Dosage: UNK
  14. DIPHENHYDRAMINE. [Concomitant]
     Active Substance: DIPHENHYDRAMINE
     Dosage: UNK
  15. LMX4 [Concomitant]
     Active Substance: LIDOCAINE
  16. VITAMIN K [Concomitant]
     Active Substance: PHYTONADIONE
     Dosage: UNK
  17. CEPHALEXIN [CEFALEXIN] [Concomitant]
     Active Substance: CEPHALEXIN
  18. COENZYME Q10 [Concomitant]
     Active Substance: DIETARY SUPPLEMENT\UBIDECARENONE
  19. MULTIVITAMINS [VITAMINS NOS] [Concomitant]
     Active Substance: VITAMINS
  20. CALADRYL [CALAMINE;DIPHENHYDRAMINE HYDROCHLORIDE] [Concomitant]
  21. SPIRIVA RESPIMAT [Concomitant]
     Active Substance: TIOTROPIUM BROMIDE
  22. CUVITRU [Suspect]
     Active Substance: HUMAN IMMUNOGLOBULIN G
     Indication: IMMUNODEFICIENCY
  23. MAGNESIUM [Concomitant]
     Active Substance: MAGNESIUM
     Dosage: UNK
  24. TURMERIC [CURCUMA LONGA RHIZOME] [Concomitant]
     Active Substance: HERBALS\TURMERIC
  25. VITAMIN D2 [Concomitant]
     Active Substance: ERGOCALCIFEROL
  26. AZELASTINE. [Concomitant]
     Active Substance: AZELASTINE HYDROCHLORIDE
     Dosage: UNK
  27. FLUBLOK [Concomitant]
     Active Substance: INFLUENZA A VIRUS A/CALIFORNIA/7/2009 (H1N1) RECOMBINANT HEMAGGLUTININ ANTIGEN\INFLUENZA A VIRUS A/VICTORIA/361/2011 (H3N2) RECOMBINANT HEMAGGLUTININ ANTIGEN\INFLUENZA B VIRUS B/WISCONSIN/1/2010 RECOMBINANT HEMAGGLUTININ ANTIGEN
     Dosage: UNK
  28. DESONIDE. [Concomitant]
     Active Substance: DESONIDE
  29. OXYGEN. [Concomitant]
     Active Substance: OXYGEN
  30. CRESTOR [Concomitant]
     Active Substance: ROSUVASTATIN CALCIUM
     Dosage: UNK
  31. SPIRIVA [Concomitant]
     Active Substance: TIOTROPIUM BROMIDE MONOHYDRATE

REACTIONS (21)
  - Pruritus [Unknown]
  - Dermatitis [Unknown]
  - Candida infection [Unknown]
  - Pain [Unknown]
  - Sensitive skin [Unknown]
  - Nausea [Unknown]
  - Chills [Unknown]
  - Influenza like illness [Unknown]
  - COVID-19 [Unknown]
  - Illness [Unknown]
  - Rash [Unknown]
  - Diarrhoea [Unknown]
  - Eczema [Unknown]
  - Back pain [Unknown]
  - Sinusitis [Unknown]
  - Headache [Unknown]
  - Paraesthesia oral [Recovered/Resolved]
  - Injection site rash [Unknown]
  - Ear pain [Unknown]
  - Infusion site pain [Unknown]
  - Intentional product use issue [Unknown]

NARRATIVE: CASE EVENT DATE: 20201203
